FAERS Safety Report 9758284 (Version 1)
Quarter: 2013Q4

REPORT INFORMATION
  Report Type: Spontaneous
  Country: JP (occurrence: JP)
  Receive Date: 20131216
  Receipt Date: 20131216
  Transmission Date: 20140711
  Serious: Yes (Life-Threatening)
  Sender: FDA-Public Use
  Company Number: 2012SP000408

PATIENT
  Age: 59 Year
  Sex: Male
  Weight: 54.6 kg

DRUGS (8)
  1. FOSPHENYTOIN SODIUM [Suspect]
     Indication: PROPHYLAXIS
     Route: 042
     Dates: start: 20120411
  2. FOSPHENYTOIN SODIUM [Suspect]
     Indication: PROPHYLAXIS
     Route: 042
     Dates: start: 20120414, end: 20120414
  3. HEPARIN [Suspect]
     Indication: PRODUCT USED FOR UNKNOWN INDICATION
     Route: 042
     Dates: start: 20120411, end: 20120411
  4. DEXAMETHASONE SODIUM PHOSPHATE [Concomitant]
     Dates: start: 20120410, end: 20120420
  5. FAMOTIDINE [Concomitant]
     Route: 042
     Dates: start: 20120410, end: 20120420
  6. EDARAVONE [Concomitant]
     Route: 042
     Dates: start: 20120411, end: 20120414
  7. CEFAZOLIN SODIUM [Concomitant]
     Route: 042
     Dates: start: 20120411, end: 20120414
  8. CARBAMAZEPINE [Concomitant]
     Dates: start: 20120412, end: 20120418

REACTIONS (2)
  - Thrombocytopenia [Recovering/Resolving]
  - Haemoglobin decreased [Unknown]
